FAERS Safety Report 9302536 (Version 2)
Quarter: 2013Q3

REPORT INFORMATION
  Report Type: Spontaneous
  Country: GB (occurrence: None)
  Receive Date: 20130516
  Receipt Date: 20130715
  Transmission Date: 20140515
  Serious: Yes (Death)
  Sender: FDA-Public Use
  Company Number: SP06656

PATIENT
  Sex: Female

DRUGS (9)
  1. MOVIPREP (SOLUTION) [Suspect]
     Indication: BOWEL PREPARATION
     Route: 048
     Dates: start: 201301
  2. PARACETAMOL [Concomitant]
  3. LANSOPRAZOLE [Concomitant]
  4. CO-AMILOFRUSE [Concomitant]
  5. TAMOXIFEN [Concomitant]
  6. TEMAZEPAM [Concomitant]
  7. VENLAFAXINE [Concomitant]
  8. CYANOCOBALAMIN [Concomitant]
  9. QUININE SULFATE [Concomitant]

REACTIONS (2)
  - Renal failure acute [None]
  - Hypotension [None]
